FAERS Safety Report 8621860-4 (Version None)
Quarter: 2012Q3

REPORT INFORMATION
  Report Type: 
  Country: None (occurrence: None)
  Receive Date: 20120822
  Receipt Date: 20120822
  Transmission Date: 20120928
  Serious: No
  Sender: FDA-Public Use
  Company Number: None

PATIENT

DRUGS (1)
  1. VENLAFAXINE HCL EXTENDED-RELEASE [Suspect]

REACTIONS (1)
  - PRODUCT SUBSTITUTION ISSUE [None]
